FAERS Safety Report 21278661 (Version 4)
Quarter: 2022Q3

REPORT INFORMATION
  Report Type: Report from Study
  Country: US (occurrence: US)
  Receive Date: 20220901
  Receipt Date: 20220911
  Transmission Date: 20221026
  Serious: No
  Sender: FDA-Public Use
  Company Number: US-NOVARTISTESTPH-NVSC2022US196410

PATIENT
  Age: 52 Year

DRUGS (1)
  1. ENTRESTO [Suspect]
     Active Substance: SACUBITRIL\VALSARTAN
     Indication: Chronic left ventricular failure
     Dosage: 24 MG, BID
     Route: 048
     Dates: start: 20220830

REACTIONS (2)
  - Wrong technique in product usage process [Unknown]
  - Prescribed underdose [Unknown]

NARRATIVE: CASE EVENT DATE: 20220830
